FAERS Safety Report 6845080-9 (Version None)
Quarter: 2010Q3

REPORT INFORMATION
  Report Type: 
  Country: None (occurrence: None)
  Receive Date: 20100715
  Receipt Date: 20070813
  Transmission Date: 20110219
  Serious: No
  Sender: FDA-Public Use
  Company Number: US-PFIZER INC-2007068015

PATIENT
  Sex: Female
  Weight: 70 kg

DRUGS (5)
  1. CHANTIX [Suspect]
     Indication: SMOKING CESSATION THERAPY
     Route: 048
     Dates: start: 20070801
  2. ALBUTEROL [Concomitant]
     Indication: CHRONIC OBSTRUCTIVE PULMONARY DISEASE
     Route: 055
  3. COMBIVENT [Concomitant]
     Indication: CHRONIC OBSTRUCTIVE PULMONARY DISEASE
     Route: 055
  4. VALSARTAN [Concomitant]
     Indication: BLOOD PRESSURE
  5. XANAX [Concomitant]

REACTIONS (3)
  - ABDOMINAL DISCOMFORT [None]
  - INSOMNIA [None]
  - NAUSEA [None]
